FAERS Safety Report 14506342 (Version 1)
Quarter: 2018Q1

REPORT INFORMATION
  Report Type: Spontaneous
  Country: BE (occurrence: BE)
  Receive Date: 20180208
  Receipt Date: 20180208
  Transmission Date: 20180509
  Serious: Yes (Other)
  Sender: FDA-Public Use
  Company Number: BE-MYLANLABS-2018M1007868

PATIENT
  Age: 29 Year
  Sex: Male

DRUGS (2)
  1. 5-FU                               /00098801/ [Concomitant]
     Active Substance: FLUOROURACIL
     Indication: ANAL CANCER
     Dosage: RECEIVED 2 CYCLES
     Route: 065
  2. MITOMYCIN. [Suspect]
     Active Substance: MITOMYCIN
     Indication: ANAL CANCER
     Dosage: RECEIVED 2 CYCLES
     Route: 065

REACTIONS (6)
  - Shock haemorrhagic [Unknown]
  - Nephrotic syndrome [Not Recovered/Not Resolved]
  - Thrombotic microangiopathy [Not Recovered/Not Resolved]
  - Anaemia [Unknown]
  - Renal failure [Unknown]
  - Thrombocytopenia [Unknown]
